FAERS Safety Report 19111417 (Version 4)
Quarter: 2021Q2

REPORT INFORMATION
  Report Type: Spontaneous
  Country: US (occurrence: CL)
  Receive Date: 20210408
  Receipt Date: 20210621
  Transmission Date: 20210717
  Serious: Yes (Hospitalization, Other)
  Sender: FDA-Public Use
  Company Number: CL-BIOMARINAP-CL-2021-135890

PATIENT
  Age: 10 Year
  Sex: Male
  Weight: 23 kg

DRUGS (1)
  1. ALDURAZYME [Suspect]
     Active Substance: LARONIDASE
     Indication: MUCOPOLYSACCHARIDOSIS I
     Dosage: 2.9 MILLILITER, QW
     Route: 041

REACTIONS (11)
  - Atrial septal defect [Unknown]
  - Device malfunction [Unknown]
  - Pruritus [Recovered/Resolved]
  - Post procedural fever [Recovered/Resolved]
  - Endocarditis staphylococcal [Recovering/Resolving]
  - Hypertension [Recovering/Resolving]
  - Aortic valve incompetence [Unknown]
  - Procedural vomiting [Recovered/Resolved]
  - Subacute endocarditis [Recovering/Resolving]
  - Central venous catheterisation [Recovering/Resolving]
  - Rash [Recovered/Resolved]

NARRATIVE: CASE EVENT DATE: 20210330
